FAERS Safety Report 5534483-0 (Version None)
Quarter: 2007Q4

REPORT INFORMATION
  Report Type: 
  Country: None (occurrence: None)
  Receive Date: 20071205
  Receipt Date: 20071128
  Transmission Date: 20080405
  Serious: Yes (Death, Life-Threatening, Other)
  Sender: FDA-Public Use
  Company Number: JP-WYE-H00757007

PATIENT
  Sex: Female
  Weight: 51 kg

DRUGS (15)
  1. MYLOTARG [Suspect]
     Indication: ACUTE MYELOID LEUKAEMIA
     Route: 041
     Dates: start: 20070702, end: 20070702
  2. MYLOTARG [Suspect]
     Route: 041
     Dates: start: 20070717, end: 20070717
  3. LASIX [Concomitant]
     Indication: PROPHYLAXIS
     Dosage: UNKNOWN
     Route: 041
     Dates: start: 20070703, end: 20070703
  4. BACTRIM [Concomitant]
     Indication: PROPHYLAXIS
     Route: 048
     Dates: end: 20070821
  5. ALTAT [Concomitant]
     Indication: PROPHYLAXIS
     Route: 048
     Dates: end: 20070821
  6. CIBENOL [Concomitant]
     Route: 048
     Dates: end: 20070821
  7. ZOLPIDEM TARTRATE [Concomitant]
     Indication: PROPHYLAXIS
     Route: 048
     Dates: end: 20070821
  8. ENTERONON [Concomitant]
     Indication: PROPHYLAXIS
     Route: 048
     Dates: end: 20070821
  9. MAGNESIUM OXIDE [Concomitant]
     Indication: PROPHYLAXIS
     Route: 048
     Dates: end: 20070821
  10. CELTECT [Concomitant]
     Indication: PROPHYLAXIS
     Route: 048
     Dates: end: 20070821
  11. AMOBAN [Concomitant]
     Indication: PROPHYLAXIS
     Route: 048
     Dates: end: 20070821
  12. DEPAS [Concomitant]
     Indication: PROPHYLAXIS
     Route: 048
     Dates: end: 20070821
  13. KYTRIL - FOR INFUSION [Concomitant]
     Indication: PROPHYLAXIS
     Dosage: UNKNOWN
     Route: 041
     Dates: start: 20070702, end: 20070702
  14. KYTRIL - FOR INFUSION [Concomitant]
     Dosage: UNKNOWN
     Route: 041
     Dates: start: 20070717, end: 20070717
  15. NORVASC [Concomitant]
     Route: 048
     Dates: end: 20070821

REACTIONS (9)
  - ANAEMIA [None]
  - DISSEMINATED INTRAVASCULAR COAGULATION [None]
  - FEBRILE NEUTROPENIA [None]
  - NEUTROPHIL COUNT DECREASED [None]
  - PLATELET COUNT DECREASED [None]
  - PNEUMONIA [None]
  - PSEUDOMEMBRANOUS COLITIS [None]
  - PULMONARY HAEMORRHAGE [None]
  - WHITE BLOOD CELL COUNT DECREASED [None]
